FAERS Safety Report 7658728-6 (Version None)
Quarter: 2011Q3

REPORT INFORMATION
  Report Type: 
  Country: None (occurrence: None)
  Receive Date: 20110805
  Receipt Date: 20110803
  Transmission Date: 20111222
  Serious: Yes (Death)
  Sender: FDA-Public Use
  Company Number: US-SHIRE-ALL1-2011-02596

PATIENT
  Sex: Male

DRUGS (2)
  1. FOSRENOL [Suspect]
     Indication: HYPERPHOSPHATAEMIA
     Dosage: 1500 MG, 3X/DAY:TID (UNKNOWN MG TABLETS)
     Route: 048
     Dates: start: 20101228
  2. FOSRENOL [Suspect]
     Dosage: 2000 MG, 3X/DAY:TID (TWO 1000 MG)
     Route: 048

REACTIONS (1)
  - DEATH [None]
